FAERS Safety Report 14938339 (Version 3)
Quarter: 2018Q2

REPORT INFORMATION
  Report Type: Spontaneous
  Country: US (occurrence: US)
  Receive Date: 20180525
  Receipt Date: 20180612
  Transmission Date: 20180711
  Serious: Yes (Hospitalization)
  Sender: FDA-Public Use
  Company Number: US-ROCHE-2129253

PATIENT
  Age: 60 Year
  Sex: Female
  Weight: 87.17 kg

DRUGS (2)
  1. XOLAIR [Suspect]
     Active Substance: OMALIZUMAB
     Indication: CHRONIC SPONTANEOUS URTICARIA
     Route: 058
     Dates: start: 20180215, end: 20180522
  2. XOLAIR [Suspect]
     Active Substance: OMALIZUMAB
     Dosage: THIRD INJECTION
     Route: 058
     Dates: start: 20180419

REACTIONS (2)
  - Cough [Recovered/Resolved]
  - Pneumonia [Recovered/Resolved]

NARRATIVE: CASE EVENT DATE: 20180216
